FAERS Safety Report 15938821 (Version 2)
Quarter: 2020Q1

REPORT INFORMATION
  Report Type: Spontaneous
  Country: US (occurrence: US)
  Receive Date: 20190208
  Receipt Date: 20200305
  Transmission Date: 20200409
  Serious: No
  Sender: FDA-Public Use
  Company Number: US-ROCHE-2206789

PATIENT
  Age: 60 Year
  Sex: Female
  Weight: 90.8 kg

DRUGS (19)
  1. XOLAIR [Suspect]
     Active Substance: OMALIZUMAB
     Route: 058
     Dates: start: 20181121
  2. DOVONEX [Concomitant]
     Active Substance: CALCIPOTRIENE
     Dosage: TO AFFECTED AREA DAILY
     Route: 065
     Dates: start: 20141010
  3. NEURONTIN [Concomitant]
     Active Substance: GABAPENTIN
     Route: 048
     Dates: start: 20180628
  4. SYNTHROID [Concomitant]
     Active Substance: LEVOTHYROXINE SODIUM
     Dosage: 175 MCG
     Route: 048
     Dates: start: 20130828
  5. TAGAMET [Concomitant]
     Active Substance: CIMETIDINE
     Route: 048
  6. FINACEA [Concomitant]
     Active Substance: AZELAIC ACID
     Route: 061
     Dates: start: 20141010
  7. SINGULAIR [Concomitant]
     Active Substance: MONTELUKAST SODIUM
     Route: 048
     Dates: start: 20180820
  8. XYZAL [Concomitant]
     Active Substance: LEVOCETIRIZINE DIHYDROCHLORIDE
     Dosage: ONGOING: UNKNOWN
     Route: 048
     Dates: start: 20180410
  9. ALL OTHER NON-THERAPEUTIC PRODUCTS [Concomitant]
     Active Substance: UNSPECIFIED INGREDIENT
     Route: 065
     Dates: start: 20180829
  10. RESTASIS [Concomitant]
     Active Substance: CYCLOSPORINE
     Dosage: PLACE 1 DROP IN BOTH EYES
     Route: 065
  11. ATARAX [Concomitant]
     Active Substance: HYDROXYZINE HYDROCHLORIDE
     Route: 048
     Dates: start: 20181105
  12. XOLAIR [Suspect]
     Active Substance: OMALIZUMAB
     Indication: CHRONIC SPONTANEOUS URTICARIA
     Route: 058
  13. XOLAIR [Suspect]
     Active Substance: OMALIZUMAB
     Dosage: 2 SEPARATE INJECTIONS
     Route: 058
     Dates: start: 20181024
  14. XOLAIR [Suspect]
     Active Substance: OMALIZUMAB
     Route: 058
     Dates: start: 20180830
  15. XOLAIR [Suspect]
     Active Substance: OMALIZUMAB
     Dosage: RESTARTED, LAST DOSE PRIOR TO TO EVENT ONSET
     Route: 058
     Dates: start: 20180926
  16. HYDROXYZINE [Concomitant]
     Active Substance: HYDROXYZINE HYDROCHLORIDE
     Dosage: ONGOING: UNKNOWN
     Route: 065
  17. TEMOVATE [Concomitant]
     Active Substance: CLOBETASOL PROPIONATE
     Dosage: SMALL AMOUNT
     Route: 065
     Dates: start: 20160713
  18. ATARAX [Concomitant]
     Active Substance: HYDROXYZINE HYDROCHLORIDE
     Route: 048
     Dates: start: 20180410
  19. CLARITIN [Concomitant]
     Active Substance: LORATADINE
     Route: 048
     Dates: start: 20140419

REACTIONS (6)
  - Muscle spasms [Not Recovered/Not Resolved]
  - Abdominal pain [Not Recovered/Not Resolved]
  - Erythema [Not Recovered/Not Resolved]
  - Product quality issue [Unknown]
  - Abdominal distension [Unknown]
  - Injection site erythema [Unknown]

NARRATIVE: CASE EVENT DATE: 20181025
